FAERS Safety Report 13437452 (Version 1)
Quarter: 2017Q2

REPORT INFORMATION
  Report Type: Spontaneous
  Country: US (occurrence: US)
  Receive Date: 20170412
  Receipt Date: 20170412
  Transmission Date: 20170830
  Serious: No
  Sender: FDA-Public Use
  Company Number: US-SA-2016SA207476

PATIENT
  Age: 44 Year
  Sex: Male

DRUGS (1)
  1. ALLEGRA [Suspect]
     Active Substance: FEXOFENADINE HYDROCHLORIDE
     Indication: MULTIPLE ALLERGIES
     Route: 065
     Dates: start: 20161104, end: 20161106

REACTIONS (3)
  - Anger [Unknown]
  - Tremor [Unknown]
  - Aggression [Unknown]

NARRATIVE: CASE EVENT DATE: 20161106
